FAERS Safety Report 11966645 (Version 2)
Quarter: 2016Q3

REPORT INFORMATION
  Report Type: Report from Study
  Country: US (occurrence: US)
  Receive Date: 20160127
  Receipt Date: 20160718
  Transmission Date: 20161109
  Serious: Yes (Hospitalization, Other)
  Sender: FDA-Public Use
  Company Number: US-ABBVIE-16K-163-1541037-00

PATIENT
  Age: 76 Year
  Sex: Male

DRUGS (2)
  1. HUMIRA [Suspect]
     Active Substance: ADALIMUMAB
     Route: 058
     Dates: end: 2016
  2. HUMIRA [Suspect]
     Active Substance: ADALIMUMAB
     Indication: PSORIATIC ARTHROPATHY
     Route: 058
     Dates: end: 201512

REACTIONS (9)
  - Rash macular [Not Recovered/Not Resolved]
  - Skin discolouration [Recovered/Resolved]
  - Prostatitis [Recovered/Resolved]
  - Throat tightness [Recovered/Resolved]
  - Choking [Recovered/Resolved]
  - Pyrexia [Recovered/Resolved]
  - Oesophageal stenosis [Unknown]
  - Diarrhoea [Recovered/Resolved]
  - Chills [Recovered/Resolved]

NARRATIVE: CASE EVENT DATE: 201511
